FAERS Safety Report 9747015 (Version 1)
Quarter: 2013Q4

REPORT INFORMATION
  Report Type: Report from Study
  Country: US (occurrence: GB)
  Receive Date: 20131211
  Receipt Date: 20131211
  Transmission Date: 20140711
  Serious: Yes (Death)
  Sender: FDA-Public Use
  Company Number: US-BAXTER-2013BAX050031

PATIENT
  Sex: 0

DRUGS (1)
  1. MANNITOL [Suspect]
     Indication: POLYURIA
     Route: 065

REACTIONS (1)
  - Death [Fatal]
